FAERS Safety Report 11917221 (Version 2)
Quarter: 2016Q1

REPORT INFORMATION
  Report Type: Spontaneous
  Country: US (occurrence: US)
  Receive Date: 20160114
  Receipt Date: 20160202
  Transmission Date: 20160526
  Serious: No
  Sender: FDA-Public Use
  Company Number: US-PFIZER INC-2016015454

PATIENT
  Age: 62 Year
  Sex: Female
  Weight: 111.58 kg

DRUGS (8)
  1. SPIRONOLACTONE, HCTZ [Concomitant]
     Indication: HYPERTENSION
     Dosage: [HYDROCHLOROTHIAZIDE 12.5MG]/[SPIRONOLACTONE 12.5MG] (25MG/25MG, TAKES 1/2 PILL IN THE MORNING)
  2. DETROL [Suspect]
     Active Substance: TOLTERODINE TARTRATE
     Dosage: 4 MG, 1X/DAY
     Dates: start: 201502
  3. DULOXETINE. [Concomitant]
     Active Substance: DULOXETINE
     Indication: DEPRESSION
     Dosage: 60 MG, 1X/DAY
     Dates: start: 201501
  4. DETROL [Suspect]
     Active Substance: TOLTERODINE TARTRATE
     Dosage: 2MG TABLETS, TAKE 2 TABLETS IN AM AND PM
     Dates: start: 201502, end: 201502
  5. DULOXETINE. [Concomitant]
     Active Substance: DULOXETINE
     Indication: ANXIETY
  6. PANTOPRAZOLE SODIUM. [Concomitant]
     Active Substance: PANTOPRAZOLE SODIUM
     Indication: DYSPEPSIA
     Dosage: 40MG ONE IN THE MORNING
  7. HYDROCODONE/IBUPROFEN [Concomitant]
     Active Substance: HYDROCODONE\IBUPROFEN
     Indication: PAIN
     Dosage: 1 DF, AS NEEDED, [HYDROCODONE BITARTRATE 7.5MG]/[IBUPROFEN 200MG] 1 TABLET EVERY 3-4 HOURS AS NEEDED
  8. BENAZEPRIL [Concomitant]
     Active Substance: BENAZEPRIL HYDROCHLORIDE
     Indication: HYPERTENSION
     Dosage: 40MG TABLET IN THE MORNING

REACTIONS (5)
  - Drug effect incomplete [Not Recovered/Not Resolved]
  - Product use issue [Unknown]
  - Intentional product misuse [Not Recovered/Not Resolved]
  - Dry mouth [Not Recovered/Not Resolved]
  - Chapped lips [Not Recovered/Not Resolved]

NARRATIVE: CASE EVENT DATE: 201502
